FAERS Safety Report 4632268-0 (Version None)
Quarter: 2005Q2

REPORT INFORMATION
  Report Type: 
  Country: None (occurrence: None)
  Receive Date: 20050401
  Receipt Date: 20040803
  Transmission Date: 20051028
  Serious: Yes (Hospitalization)
  Sender: FDA-Public Use
  Company Number: 04P-163-0268976-00

PATIENT
  Age: 41 Year
  Sex: Male
  Weight: 113.3993 kg

DRUGS (4)
  1. DEPAKOTE [Suspect]
     Indication: BIPOLAR DISORDER
     Dosage: 500 MG, 4 IN 1 D, PER ORAL
     Route: 048
     Dates: start: 19960101, end: 20030101
  2. RISPERIDONE [Concomitant]
  3. OLANZAPINE [Concomitant]
  4. ATORVASTATIN [Concomitant]

REACTIONS (3)
  - ALANINE AMINOTRANSFERASE INCREASED [None]
  - BIPOLAR DISORDER [None]
  - TREMOR [None]
